FAERS Safety Report 19800140 (Version 14)
Quarter: 2022Q3

REPORT INFORMATION
  Report Type: Spontaneous
  Country: GB (occurrence: GB)
  Receive Date: 20210907
  Receipt Date: 20220727
  Transmission Date: 20221026
  Serious: Yes (Hospitalization, Other)
  Sender: FDA-Public Use
  Company Number: GB-MYLANLABS-2021M1058645

PATIENT
  Age: 66 Year
  Sex: Male

DRUGS (1)
  1. CLOZARIL [Suspect]
     Active Substance: CLOZAPINE
     Indication: Schizophrenia
     Dosage: 125 MILLIGRAM, BID
     Route: 048
     Dates: start: 20191029

REACTIONS (18)
  - COVID-19 [Unknown]
  - Germ cell neoplasm [Not Recovered/Not Resolved]
  - Testicular cancer metastatic [Not Recovered/Not Resolved]
  - Neutrophil count increased [Recovered/Resolved]
  - Thrombocytopenia [Recovering/Resolving]
  - Leukocytosis [Recovered/Resolved]
  - Red blood cell count decreased [Unknown]
  - Red cell distribution width increased [Unknown]
  - Haematocrit decreased [Unknown]
  - Basophil count increased [Unknown]
  - Platelet count increased [Unknown]
  - Mean cell volume increased [Unknown]
  - Neutrophil count decreased [Recovered/Resolved]
  - White blood cell count decreased [Recovered/Resolved]
  - Hypochromic anaemia [Unknown]
  - Anaemia [Not Recovered/Not Resolved]
  - Haemoglobin decreased [Unknown]
  - Differential white blood cell count abnormal [Unknown]

NARRATIVE: CASE EVENT DATE: 20210701
